FAERS Safety Report 8961449 (Version 1)
Quarter: 2012Q4

REPORT INFORMATION
  Report Type: 
  Country: US (occurrence: US)
  Receive Date: 20121213
  Receipt Date: 20121213
  Transmission Date: 20130627
  Serious: No
  Sender: FDA-Public Use
  Company Number: US-ALLERGAN-1201304US

PATIENT
  Sex: Female

DRUGS (1)
  1. ACZONE [Suspect]
     Indication: ACNE
     Dosage: dime sized amount applied to face, morning and night
     Route: 061
     Dates: start: 2011

REACTIONS (2)
  - Acne [Not Recovered/Not Resolved]
  - Therapeutic response decreased [Unknown]
